FAERS Safety Report 4660381-0 (Version None)
Quarter: 2005Q2

REPORT INFORMATION
  Report Type: 
  Country: None (occurrence: None)
  Receive Date: 20050427
  Receipt Date: 20050322
  Transmission Date: 20051028
  Serious: No
  Sender: FDA-Public Use
  Company Number: 213205

PATIENT
  Age: 40 Year
  Sex: Male
  Weight: 100.9 kg

DRUGS (2)
  1. XOLAIR [Suspect]
     Indication: ASTHMA
     Dosage: 375 MG, Q2W, SUBCUTANEOUS
     Route: 058
     Dates: start: 20050119, end: 20050316
  2. IMMUNOTHERAPY (UNKNOWN ANITGEN) (ALLERGENIC EXTRACTS) [Concomitant]

REACTIONS (1)
  - INJECTION SITE REACTION [None]
